FAERS Safety Report 8188942-5 (Version None)
Quarter: 2012Q1

REPORT INFORMATION
  Report Type: 
  Country: None (occurrence: None)
  Receive Date: 20120306
  Receipt Date: 20120228
  Transmission Date: 20120608
  Serious: Yes (Other)
  Sender: FDA-Public Use
  Company Number: US-AMGEN-USASP2011070028

PATIENT
  Sex: Male
  Weight: 3.175 kg

DRUGS (4)
  1. FOLIC [Concomitant]
     Dosage: UNK UNK, PRN
  2. ENBREL [Suspect]
     Dosage: 50 MG, QWK
     Route: 064
     Dates: start: 20080501, end: 20110603
  3. ENBREL [Suspect]
     Dosage: 50 MG, QWK
     Route: 064
     Dates: end: 20111228
  4. PRENATAL VITAMINS                  /01549301/ [Concomitant]
     Dosage: UNK UNK, PRN

REACTIONS (2)
  - RENAL APLASIA [None]
  - HYDROCELE [None]
